FAERS Safety Report 10464970 (Version 1)
Quarter: 2014Q3

REPORT INFORMATION
  Report Type: Spontaneous
  Country: US (occurrence: US)
  Receive Date: 20140919
  Receipt Date: 20140919
  Transmission Date: 20150326
  Serious: No
  Sender: FDA-Public Use
  Company Number: US-BAUSCH-SYM-2013-10951

PATIENT
  Age: 60 Year
  Sex: Female
  Weight: 90.8 kg

DRUGS (1)
  1. ATRALIN [Suspect]
     Active Substance: TRETINOIN
     Indication: POLYP
     Dosage: ONCE DAILY IN THE EVENING
     Route: 061
     Dates: start: 201309, end: 2013

REACTIONS (1)
  - Application site rash [Not Recovered/Not Resolved]

NARRATIVE: CASE EVENT DATE: 201309
